FAERS Safety Report 7082827-3 (Version None)
Quarter: 2010Q4

REPORT INFORMATION
  Report Type: 
  Country: None (occurrence: None)
  Receive Date: 20101104
  Receipt Date: 20101025
  Transmission Date: 20110411
  Serious: Yes (Hospitalization, Other)
  Sender: FDA-Public Use
  Company Number: ES-SANOFI-AVENTIS-2010SA065352

PATIENT
  Sex: Female

DRUGS (1)
  1. DRONEDARONE HCL [Suspect]
     Indication: ATRIAL FIBRILLATION
     Route: 048
     Dates: end: 20101001

REACTIONS (2)
  - CARDIAC FAILURE [None]
  - ELECTROCARDIOGRAM QT PROLONGED [None]
